FAERS Safety Report 8099841-1 (Version None)
Quarter: 2012Q1

REPORT INFORMATION
  Report Type: 
  Country: None (occurrence: None)
  Receive Date: 20120129
  Receipt Date: 20111007
  Transmission Date: 20120608
  Serious: No
  Sender: FDA-Public Use
  Company Number: US-ABBOTT-11P-163-0862644-00

PATIENT
  Age: 59 Year
  Sex: Female

DRUGS (7)
  1. CALCIUM [Concomitant]
     Indication: MINERAL SUPPLEMENTATION
     Dosage: DAILY
  2. FLAXSEED OIL [Concomitant]
     Indication: PHYTOTHERAPY
     Dosage: DAILY
  3. VITAMIN E [Concomitant]
     Indication: VITAMIN SUPPLEMENTATION
     Dosage: DAILY
  4. FISH OIL [Concomitant]
     Indication: SUPPLEMENTATION THERAPY
     Dosage: DAILY
  5. ESTRADIOL [Concomitant]
     Indication: HORMONE REPLACEMENT THERAPY
     Dosage: FOR 16 YEARS
  6. HUMIRA [Suspect]
     Indication: PSORIASIS
     Dates: start: 20110210
  7. MULTI-VITAMIN [Concomitant]
     Indication: VITAMIN SUPPLEMENTATION
     Dosage: DAILY

REACTIONS (5)
  - HYPERSENSITIVITY [None]
  - DYSPEPSIA [None]
  - PARANASAL SINUS HYPERSECRETION [None]
  - INCREASED UPPER AIRWAY SECRETION [None]
  - RHINORRHOEA [None]
